FAERS Safety Report 5411970-7 (Version None)
Quarter: 2007Q3

REPORT INFORMATION
  Report Type: 
  Country: None (occurrence: None)
  Receive Date: 20070813
  Receipt Date: 20070807
  Transmission Date: 20080115
  Serious: Yes (Death, Other)
  Sender: FDA-Public Use
  Company Number: PHBS2007JP13220

PATIENT
  Age: 54 Year
  Sex: Female

DRUGS (6)
  1. CYCLOSPORINE [Suspect]
     Indication: STEM CELL TRANSPLANT
     Route: 065
     Dates: start: 20051201
  2. CYCLOSPORINE [Suspect]
     Dosage: 150 MG/DAY
     Route: 065
  3. CYCLOSPORINE [Suspect]
     Dosage: 75 MG/DAY
     Route: 065
  4. PREDNISOLONE [Suspect]
     Indication: ACUTE GRAFT VERSUS HOST DISEASE IN LIVER
     Dosage: 2 MG/KG/DAY
     Route: 065
  5. PREDNISOLONE [Suspect]
     Dosage: 0.2 MG/KG/DAY
     Route: 065
  6. SULFAMETHOXAZOLE W/TRIMETHOPRIM [Suspect]
     Indication: STEM CELL TRANSPLANT

REACTIONS (9)
  - BLAST CRISIS IN MYELOGENOUS LEUKAEMIA [None]
  - CD4 LYMPHOCYTES DECREASED [None]
  - CEREBRAL TOXOPLASMOSIS [None]
  - CSF PROTEIN INCREASED [None]
  - CSF WHITE BLOOD CELL COUNT INCREASED [None]
  - HEADACHE [None]
  - NUCHAL RIGIDITY [None]
  - PNEUMONIA BACTERIAL [None]
  - PSEUDOMONAL SEPSIS [None]
